FAERS Safety Report 26010269 (Version 1)
Quarter: 2025Q4

REPORT INFORMATION
  Report Type: Spontaneous
  Country: CN (occurrence: CN)
  Receive Date: 20251107
  Receipt Date: 20251107
  Transmission Date: 20260118
  Serious: Yes (Disabling, Other)
  Sender: QILU PHARMACEUTICAL (HAINAN) CO., LTD.
  Company Number: CN-QILU PHARMACEUTICAL (HAINAN) CO.  LTD.-QLH-000345-2025

PATIENT
  Age: 73 Year
  Sex: Male

DRUGS (8)
  1. OXALIPLATIN [Suspect]
     Active Substance: OXALIPLATIN
     Indication: Rectal cancer metastatic
     Dosage: 150 MG (6 CYCLES)
     Route: 065
     Dates: start: 202005, end: 202301
  2. OXALIPLATIN [Suspect]
     Active Substance: OXALIPLATIN
     Dosage: 150 MG EVERY 3 WEEKS
     Route: 065
     Dates: start: 20230307, end: 20230307
  3. OXALIPLATIN [Suspect]
     Active Substance: OXALIPLATIN
     Dosage: 150 MG EVERY 3 WEEKS
     Route: 065
     Dates: start: 20230330, end: 20230330
  4. OXALIPLATIN [Suspect]
     Active Substance: OXALIPLATIN
     Dosage: 150 MG EVERY 3 WEEKS
     Route: 065
     Dates: start: 20230511
  5. CAPECITABINE [Concomitant]
     Active Substance: CAPECITABINE
     Indication: Rectal cancer metastatic
     Dosage: UNK
     Route: 065
     Dates: start: 202005, end: 202301
  6. CAPECITABINE [Concomitant]
     Active Substance: CAPECITABINE
     Dosage: UNK, EVERY 3 WEEKS
     Route: 065
     Dates: start: 20230307, end: 20230307
  7. CAPECITABINE [Concomitant]
     Active Substance: CAPECITABINE
     Dosage: UNK, EVERY 3 WEEKS
     Route: 065
     Dates: start: 20230330, end: 20230330
  8. CAPECITABINE [Concomitant]
     Active Substance: CAPECITABINE
     Dosage: UNK, EVERY 3 WEEKS
     Route: 065
     Dates: start: 20230511

REACTIONS (1)
  - Neuropathy peripheral [Recovered/Resolved]

NARRATIVE: CASE EVENT DATE: 20200101
